FAERS Safety Report 4570697-4 (Version None)
Quarter: 2005Q1

REPORT INFORMATION
  Report Type: 
  Country: None (occurrence: None)
  Receive Date: 20050131
  Receipt Date: 20041112
  Transmission Date: 20050727
  Serious: Yes (Other)
  Sender: FDA-Public Use
  Company Number: 207887

PATIENT
  Age: 31 Year
  Sex: Female

DRUGS (3)
  1. AVONEX [Suspect]
     Indication: MULTIPLE SCLEROSIS
     Dosage: 30 UG; QW; IM
     Route: 030
     Dates: start: 20041105
  2. TYLENOL #1 [Concomitant]
  3. MOTRIN [Concomitant]

REACTIONS (2)
  - CONDITION AGGRAVATED [None]
  - DYSPHAGIA [None]
